FAERS Safety Report 10484200 (Version 2)
Quarter: 2014Q3

REPORT INFORMATION
  Report Type: Spontaneous
  Country: US (occurrence: JP)
  Receive Date: 20140930
  Receipt Date: 20140930
  Transmission Date: 20150326
  Serious: Yes (Hospitalization)
  Sender: FDA-Public Use
  Company Number: US-SA-2014SA123650

PATIENT
  Age: 7 Year

DRUGS (2)
  1. DDAVP [Suspect]
     Active Substance: DESMOPRESSIN ACETATE
     Indication: ENURESIS
     Route: 045
  2. STREPTOCOCCUS FAECALIS/STREPTOCOCCUS LACTIS/LACTOBACILLUS LACTIS/BIFIDOBACTERIUM BIFIDUM/LACTOBACILL [Concomitant]
     Route: 048

REACTIONS (1)
  - Vomiting [Unknown]
